FAERS Safety Report 8507131-5 (Version None)
Quarter: 2012Q3

REPORT INFORMATION
  Report Type: 
  Country: None (occurrence: None)
  Receive Date: 20120703
  Receipt Date: 20120620
  Transmission Date: 20120928
  Serious: Yes (Death)
  Sender: FDA-Public Use
  Company Number: DSA_58072_2012

PATIENT

DRUGS (3)
  1. FLUOROURACIL [Suspect]
     Indication: RECTAL CANCER
     Dosage: 400 MG/M2, EVERY CYCLE INTRAVENOUS BOLUS, 200 MG/M2
     Route: 040
  2. LEUCOVORIN CALCIUM [Suspect]
     Indication: RECTAL CANCER
     Dosage: 400 MG/M2, EVERY CYCLE
  3. OXALIPLATIN [Suspect]
     Indication: RECTAL CANCER
     Dosage: 100 MG/M2, EVERY CYCLE INTRAVENOUS (NOT OTHERWISE SPECIFIED)
     Route: 042

REACTIONS (1)
  - FEBRILE NEUTROPENIA [None]
